FAERS Safety Report 7368654-8 (Version None)
Quarter: 2011Q1

REPORT INFORMATION
  Report Type: 
  Country: None (occurrence: None)
  Receive Date: 20110323
  Receipt Date: 20110314
  Transmission Date: 20110831
  Serious: Yes (Hospitalization)
  Sender: FDA-Public Use
  Company Number: IT-BRISTOL-MYERS SQUIBB COMPANY-15598485

PATIENT
  Age: 63 Year
  Sex: Male

DRUGS (5)
  1. OXYCONTIN [Concomitant]
     Dates: start: 20101118
  2. DELTACORTENE [Concomitant]
     Dates: start: 20101218
  3. FORTIMEL [Concomitant]
     Dates: start: 20101118
  4. ERBITUX [Suspect]
     Indication: HEAD AND NECK CANCER
     Dosage: ERBITUX 5MG/ML, LAST INF: 27JAN11
     Route: 042
     Dates: start: 20110120
  5. LANSOPRAZOLE [Concomitant]
     Dates: start: 20101118

REACTIONS (1)
  - PNEUMONITIS [None]
